FAERS Safety Report 17316569 (Version 3)
Quarter: 2020Q1

REPORT INFORMATION
  Report Type: Spontaneous
  Country: US (occurrence: US)
  Receive Date: 20200124
  Receipt Date: 20200310
  Transmission Date: 20200409
  Serious: Yes (Hospitalization, Other)
  Sender: FDA-Public Use
  Company Number: US-HTU-2020US020079

PATIENT
  Age: 26 Year
  Sex: Male

DRUGS (1)
  1. VALCHLOR [Suspect]
     Active Substance: MECHLORETHAMINE
     Indication: CUTANEOUS T-CELL LYMPHOMA
     Dosage: THIN FILM, SINGLE
     Route: 061
     Dates: start: 20191224

REACTIONS (8)
  - Disease complication [Unknown]
  - Chills [Unknown]
  - Pyrexia [Unknown]
  - Cutaneous T-cell lymphoma [Unknown]
  - Malignant neoplasm progression [Unknown]
  - Malaise [Unknown]
  - Dry skin [Unknown]
  - Pustule [Recovered/Resolved]

NARRATIVE: CASE EVENT DATE: 20200105
